FAERS Safety Report 6024968-5 (Version None)
Quarter: 2008Q4

REPORT INFORMATION
  Report Type: 
  Country: None (occurrence: None)
  Receive Date: 20081231
  Receipt Date: 20081219
  Transmission Date: 20090506
  Serious: Yes (Other)
  Sender: FDA-Public Use
  Company Number: AT-BRISTOL-MYERS SQUIBB COMPANY-14457436

PATIENT
  Age: 74 Year
  Sex: Male

DRUGS (1)
  1. DASATINIB [Suspect]
     Indication: CHRONIC MYELOID LEUKAEMIA
     Route: 048

REACTIONS (5)
  - ANAEMIA [None]
  - BRONCHITIS [None]
  - OLFACTORY NERVE DISORDER [None]
  - PLEURAL EFFUSION [None]
  - WEIGHT DECREASED [None]
